FAERS Safety Report 6570748-1 (Version None)
Quarter: 2010Q1

REPORT INFORMATION
  Report Type: 
  Country: None (occurrence: None)
  Receive Date: 20100204
  Receipt Date: 20100126
  Transmission Date: 20100710
  Serious: Yes (Hospitalization)
  Sender: FDA-Public Use
  Company Number: CH-SANOFI-AVENTIS-2010SA005126

PATIENT
  Age: 55 Year
  Sex: Female

DRUGS (6)
  1. STILNOX [Suspect]
     Route: 048
     Dates: end: 20091010
  2. AROMASIN [Suspect]
     Route: 048
     Dates: start: 20040101, end: 20091005
  3. CYMBALTA [Suspect]
     Route: 048
     Dates: start: 20070101, end: 20091005
  4. CANDESARTAN CILEXETIL [Suspect]
     Indication: ESSENTIAL HYPERTENSION
     Route: 048
     Dates: start: 20070101, end: 20091005
  5. NOROXIN [Concomitant]
     Route: 048
     Dates: start: 20090914, end: 20090916
  6. SERESTA [Concomitant]
     Indication: DRUG USE FOR UNKNOWN INDICATION
     Dosage: ^LONG TERM^
     Route: 048

REACTIONS (3)
  - CHOLESTASIS [None]
  - GENERAL PHYSICAL HEALTH DETERIORATION [None]
  - JAUNDICE [None]
